FAERS Safety Report 22112538 (Version 1)
Quarter: 2023Q1

REPORT INFORMATION
  Report Type: Spontaneous
  Country: US (occurrence: US)
  Receive Date: 20230319
  Receipt Date: 20230319
  Transmission Date: 20230418
  Serious: No
  Sender: FDA-Public Use
  Company Number: US-SA-SAC20230316001215

PATIENT
  Sex: Male
  Weight: 76.657 kg

DRUGS (1)
  1. DUPIXENT [Suspect]
     Active Substance: DUPILUMAB
     Indication: Dermatitis atopic
     Dosage: 300 MG, QM
     Route: 058

REACTIONS (6)
  - Hypoaesthesia [Unknown]
  - Condition aggravated [Unknown]
  - Carpal tunnel syndrome [Unknown]
  - Pain [Unknown]
  - Grip strength decreased [Unknown]
  - Inappropriate schedule of product administration [Unknown]
